FAERS Safety Report 23155181 (Version 3)
Quarter: 2024Q1

REPORT INFORMATION
  Report Type: Spontaneous
  Country: US (occurrence: US)
  Receive Date: 20231107
  Receipt Date: 20240119
  Transmission Date: 20240409
  Serious: No
  Sender: FDA-Public Use
  Company Number: US-SA-SAC20231030000692

PATIENT
  Age: 3 Year
  Sex: Female
  Weight: 13 kg

DRUGS (6)
  1. DUPIXENT [Suspect]
     Active Substance: DUPILUMAB
     Indication: Dermatitis atopic
     Dosage: 200 MG, Q4W
     Route: 058
  2. DUPIXENT [Suspect]
     Active Substance: DUPILUMAB
     Indication: Dermatitis allergic
     Dosage: 300 MG, Q4W
     Route: 058
  3. DUPIXENT [Suspect]
     Active Substance: DUPILUMAB
     Indication: Eczema
  4. MOMETASONE [Concomitant]
     Active Substance: MOMETASONE
  5. TACROLIMUS [Concomitant]
     Active Substance: TACROLIMUS
  6. FLUOCINONIDE [Concomitant]
     Active Substance: FLUOCINONIDE

REACTIONS (2)
  - Product prescribing issue [Unknown]
  - Drug effect less than expected [Unknown]
